FAERS Safety Report 8220734-0 (Version None)
Quarter: 2012Q1

REPORT INFORMATION
  Report Type: 
  Country: None (occurrence: None)
  Receive Date: 20120320
  Receipt Date: 20120309
  Transmission Date: 20120608
  Serious: Yes (Hospitalization)
  Sender: FDA-Public Use
  Company Number: DE-UCBSA-042498

PATIENT
  Sex: Female
  Weight: 74 kg

DRUGS (10)
  1. NEUPRO [Suspect]
     Dosage: 1 MG/24 HOUR
     Route: 062
     Dates: start: 20110729, end: 20110808
  2. CONJUGATED ESTROGENS [Concomitant]
     Indication: OSTEOPOROSIS
     Route: 048
  3. BISOPROLOL FUMARATE [Concomitant]
     Indication: HYPERTENSION
     Dosage: DAILY DOSE: 2.5 MG, SINGLE DOSE: 5 MG, NUMBER OF SINGLE DOSES (PER DAY): 0.5
     Route: 048
  4. RESTEX RETARD [Concomitant]
     Indication: RESTLESS LEGS SYNDROME
     Dosage: 100/25 MG DAILY
     Route: 048
  5. TORSEMIDE [Concomitant]
     Indication: HYPERTENSION
     Dosage: DAILY DOSE: 10 MG, SINGLE DOSE: 20 MG, NUMBER OF SINGLE DOSES (PER DAY): 0.5
     Route: 048
  6. NEUPRO [Suspect]
     Dosage: 1MG/24 HOUR
     Route: 062
     Dates: start: 20110808, end: 20110815
  7. CANDESARTAN CILEXETIL [Concomitant]
     Indication: HYPERTENSION
     Route: 048
  8. CITALOPRAM HYDROBROMIDE [Concomitant]
     Indication: DEPRESSION
     Route: 048
  9. RESTEX [Concomitant]
     Indication: RESTLESS LEGS SYNDROME
     Dosage: 100/25 MG DAILY
     Route: 048
     Dates: start: 20110729, end: 20110808
  10. NEUPRO [Suspect]
     Indication: RESTLESS LEGS SYNDROME
     Dosage: 1MG/24 HOUR,
     Route: 062
     Dates: start: 20110820

REACTIONS (2)
  - MICTURITION URGENCY [None]
  - BRONCHITIS [None]
